FAERS Safety Report 10907704 (Version 1)
Quarter: 2015Q1

REPORT INFORMATION
  Report Type: Spontaneous
  Country: US (occurrence: US)
  Receive Date: 20150312
  Receipt Date: 20150312
  Transmission Date: 20150721
  Serious: No
  Sender: FDA-Public Use
  Company Number: US-INCYTE CORPORATION-2014IN003478

PATIENT
  Age: 75 Year
  Sex: Female

DRUGS (14)
  1. JAKAFI [Suspect]
     Active Substance: RUXOLITINIB
     Dosage: 10 MG, BID
  2. OCUVITE [Concomitant]
     Active Substance: VITAMINS
  3. JAKAFI [Suspect]
     Active Substance: RUXOLITINIB
     Indication: MYELOFIBROSIS
     Dosage: 20 MG, BID
     Route: 048
     Dates: start: 20130911
  4. JAKAFI [Suspect]
     Active Substance: RUXOLITINIB
     Dosage: NOT SPECIFIED
     Route: 048
     Dates: start: 20141117
  5. METOPROLOL [Concomitant]
     Active Substance: METOPROLOL
  6. AMBIEN [Concomitant]
     Active Substance: ZOLPIDEM TARTRATE
  7. MULTIVITAMIN                       /00097801/ [Concomitant]
     Active Substance: VITAMINS
  8. CALCIUM CARBONATE. [Concomitant]
     Active Substance: CALCIUM CARBONATE
  9. FISH OIL [Concomitant]
     Active Substance: FISH OIL
  10. TRIAMCINOLONE [Concomitant]
     Active Substance: TRIAMCINOLONE
  11. LUTEIN                             /01638501/ [Concomitant]
     Active Substance: LUTEIN
  12. GLUCOSAMINE [Concomitant]
     Active Substance: GLUCOSAMINE
  13. LYSINE [Concomitant]
     Active Substance: LYSINE
  14. JAKAFI [Suspect]
     Active Substance: RUXOLITINIB
     Dosage: 10 MG 2 EVERY AM AND 1 EVERY PM
     Route: 048
     Dates: start: 20130911

REACTIONS (2)
  - Pollakiuria [Unknown]
  - Platelet count decreased [Unknown]

NARRATIVE: CASE EVENT DATE: 20141117
